FAERS Safety Report 18065394 (Version 1)
Quarter: 2020Q3

REPORT INFORMATION
  Report Type: Spontaneous
  Country: US (occurrence: US)
  Receive Date: 20200724
  Receipt Date: 20200724
  Transmission Date: 20201103
  Serious: Yes (Disabling)
  Sender: FDA-Public Use
  Company Number: None

PATIENT
  Age: 22 Year
  Sex: Female
  Weight: 53 kg

DRUGS (6)
  1. HUMIRA [Suspect]
     Active Substance: ADALIMUMAB
     Indication: CROHN^S DISEASE
     Dosage: ?          QUANTITY:2 INJECTION(S);OTHER FREQUENCY:EVERY 2 WEEKS;?
     Route: 058
  2. CYCLIZINE [Concomitant]
     Active Substance: CYCLIZINE
  3. TRAMADOL. [Concomitant]
     Active Substance: TRAMADOL
  4. CETIRIZINE [Concomitant]
     Active Substance: CETIRIZINE HYDROCHLORIDE
  5. MERCAPTOPURINE. [Concomitant]
     Active Substance: MERCAPTOPURINE
  6. AMITRIPTYLINE [Concomitant]
     Active Substance: AMITRIPTYLINE

REACTIONS (2)
  - Alopecia [None]
  - Psoriasis [None]

NARRATIVE: CASE EVENT DATE: 20150630
